FAERS Safety Report 13915814 (Version 2)
Quarter: 2017Q3

REPORT INFORMATION
  Report Type: Report from Study
  Country: US (occurrence: US)
  Receive Date: 20170829
  Receipt Date: 20170918
  Transmission Date: 20171127
  Serious: Yes (Death, Hospitalization, Other)
  Sender: FDA-Public Use
  Company Number: PHEH2017US027488

PATIENT
  Age: 11 Year
  Sex: Female

DRUGS (1)
  1. TOBI [Suspect]
     Active Substance: TOBRAMYCIN
     Indication: PSEUDOMONAS INFECTION
     Dosage: ALTERATION MONTH
     Route: 055

REACTIONS (19)
  - Cardio-respiratory arrest [Fatal]
  - Pseudomonas infection [Unknown]
  - Respiratory failure [Fatal]
  - Bronchiectasis [Unknown]
  - Dyspnoea [Unknown]
  - Fatigue [Unknown]
  - Malaise [Unknown]
  - Cough [Unknown]
  - Pneumonia [Unknown]
  - Wheezing [Unknown]
  - Crepitations [Unknown]
  - Clubbing [Unknown]
  - Chest discomfort [Unknown]
  - Mental status changes [Fatal]
  - Productive cough [Unknown]
  - Cyanosis [Unknown]
  - Interstitial lung disease [Unknown]
  - Immune system disorder [Unknown]
  - Enterococcal infection [Unknown]

NARRATIVE: CASE EVENT DATE: 20170426
